FAERS Safety Report 5075853-7 (Version None)
Quarter: 2006Q3

REPORT INFORMATION
  Report Type: 
  Country: None (occurrence: None)
  Receive Date: 20060807
  Receipt Date: 20060807
  Transmission Date: 20061208
  Serious: Yes (Life-Threatening, Hospitalization, Other)
  Sender: FDA-Public Use
  Company Number: None

PATIENT
  Age: 61 Year
  Sex: Female
  Weight: 108.8 kg

DRUGS (2)
  1. LOVENOX [Suspect]
     Indication: PULMONARY EMBOLISM
     Dosage: 100MG Q12H SC
     Route: 058
     Dates: start: 20060703, end: 20060712
  2. HEPARIN [Suspect]
     Indication: PULMONARY EMBOLISM
     Dosage: 900 UNITS/HR CONTINUOUS INFUSION
     Dates: start: 20060712, end: 20060713

REACTIONS (2)
  - MUSCLE HAEMORRHAGE [None]
  - RESPIRATORY FAILURE [None]
